FAERS Safety Report 4624672-1 (Version None)
Quarter: 2005Q1

REPORT INFORMATION
  Report Type: 
  Country: None (occurrence: None)
  Receive Date: 20050107
  Receipt Date: 20041027
  Transmission Date: 20050727
  Serious: No
  Sender: FDA-Public Use
  Company Number: 235394K04USA

PATIENT
  Age: 53 Year
  Sex: Female

DRUGS (1)
  1. REBIF [Suspect]
     Indication: MULTIPLE SCLEROSIS
     Dosage: 44 MCG, 3 IN 1 WEEKS, SUBCUTANEOUS, SEE IMAGE
     Dates: start: 20041005

REACTIONS (5)
  - INJECTION SITE IRRITATION [None]
  - INJECTION SITE REACTION [None]
  - MYALGIA [None]
  - RASH ERYTHEMATOUS [None]
  - SINUSITIS [None]
